FAERS Safety Report 18363279 (Version 4)
Quarter: 2020Q4

REPORT INFORMATION
  Report Type: Spontaneous
  Country: US (occurrence: US)
  Receive Date: 20201008
  Receipt Date: 20201120
  Transmission Date: 20210114
  Serious: Yes (Hospitalization, Other)
  Sender: FDA-Public Use
  Company Number: US-SA-2020SA279028

PATIENT

DRUGS (1)
  1. DUPIXENT [Suspect]
     Active Substance: DUPILUMAB
     Indication: DERMATITIS ATOPIC
     Dosage: 300 MG, QOW
     Route: 058
     Dates: start: 202009

REACTIONS (7)
  - Dry eye [Unknown]
  - Erythema [Unknown]
  - Ocular hyperaemia [Unknown]
  - Bipolar disorder [Unknown]
  - Eye disorder [Unknown]
  - Injection site pruritus [Unknown]
  - Mental disorder [Unknown]

NARRATIVE: CASE EVENT DATE: 2020
